FAERS Safety Report 4476476-0 (Version None)
Quarter: 2004Q4

REPORT INFORMATION
  Report Type: 
  Country: None (occurrence: None)
  Receive Date: 20041012
  Receipt Date: 20040930
  Transmission Date: 20050328
  Serious: Yes (Other)
  Sender: FDA-Public Use
  Company Number: US-JNJFOC-20041001298

PATIENT
  Age: 9 Month
  Sex: Female
  Weight: 7.2576 kg

DRUGS (3)
  1. ACETAMINOPHEN [Suspect]
     Indication: PYREXIA
     Dosage: ,  1 IN 1 TOTAL,  INTRAVENOUS
     Route: 042
     Dates: start: 20040928, end: 20040928
  2. INFANT'S TYLENOL (SUSPENSION) ACETAMINOPHEN [Concomitant]
  3. ZYRTEC [Concomitant]

REACTIONS (2)
  - CONDITION AGGRAVATED [None]
  - PYREXIA [None]
